FAERS Safety Report 6647114-3 (Version None)
Quarter: 2010Q1

REPORT INFORMATION
  Report Type: 
  Country: None (occurrence: None)
  Receive Date: 20100323
  Receipt Date: 20100311
  Transmission Date: 20100710
  Serious: Yes (Hospitalization)
  Sender: FDA-Public Use
  Company Number: PHHY2010CN15910

PATIENT
  Sex: Male
  Weight: 11 kg

DRUGS (2)
  1. TRILEPTAL [Suspect]
     Indication: PARTIAL SEIZURES
     Dosage: 3 ML, BID
     Route: 048
     Dates: start: 20100206, end: 20100224
  2. VALPROATE SODIUM [Concomitant]

REACTIONS (2)
  - PYREXIA [None]
  - RASH [None]
